FAERS Safety Report 5430539-1 (Version None)
Quarter: 2007Q3

REPORT INFORMATION
  Report Type: 
  Country: None (occurrence: None)
  Receive Date: 20070828
  Receipt Date: 20070816
  Transmission Date: 20080115
  Serious: Yes (Hospitalization)
  Sender: FDA-Public Use
  Company Number: 017471

PATIENT
  Sex: Female

DRUGS (5)
  1. METHOTREXATE [Suspect]
     Indication: RHEUMATOID ARTHRITIS
     Dosage: 20 MG, WEEKLY, ORAL
     Route: 048
  2. CELEBREX [Concomitant]
  3. VIOXX [Concomitant]
  4. FOSAMAX [Concomitant]
  5. HUMIRA [Concomitant]

REACTIONS (8)
  - ABDOMINAL DISCOMFORT [None]
  - ABDOMINAL DISTENSION [None]
  - DIZZINESS [None]
  - ERYTHEMA [None]
  - FAECAL INCONTINENCE [None]
  - FEELING OF BODY TEMPERATURE CHANGE [None]
  - NAUSEA [None]
  - SYNCOPE [None]
